FAERS Safety Report 19119462 (Version 2)
Quarter: 2021Q2

REPORT INFORMATION
  Report Type: Report from Study
  Country: None (occurrence: US)
  Receive Date: 20210411
  Receipt Date: 20210421
  Transmission Date: 20210717
  Serious: No
  Sender: FDA-Public Use
  Company Number: US-ABBVIE-20K-163-3653324-00

PATIENT
  Sex: Female
  Weight: 61.29 kg

DRUGS (8)
  1. VITAMIN B12 [Concomitant]
     Active Substance: CYANOCOBALAMIN
     Indication: PRODUCT USED FOR UNKNOWN INDICATION
  2. BABY ASPIRIN [Concomitant]
     Active Substance: ASPIRIN
     Indication: PRODUCT USED FOR UNKNOWN INDICATION
  3. DUOPA [Suspect]
     Active Substance: CARBIDOPA\LEVODOPA
  4. KLONOPIN [Concomitant]
     Active Substance: CLONAZEPAM
     Indication: PRODUCT USED FOR UNKNOWN INDICATION
  5. COVID?19 VACCINE NOS. [Concomitant]
     Active Substance: COVID-19 VACCINE NOS
     Indication: COVID-19 IMMUNISATION
     Dosage: MFR ? PFIZER
     Route: 030
     Dates: start: 20210125, end: 20210125
  6. VITAMIN D [Concomitant]
     Active Substance: VITAMIN D NOS
     Indication: PRODUCT USED FOR UNKNOWN INDICATION
  7. DUOPA [Suspect]
     Active Substance: CARBIDOPA\LEVODOPA
     Indication: PARKINSON^S DISEASE
     Route: 050
     Dates: start: 20190409
  8. COVID?19 VACCINE NOS. [Concomitant]
     Active Substance: COVID-19 VACCINE NOS
     Dosage: MFR ? PFIZER
     Route: 030
     Dates: start: 20210216, end: 20210216

REACTIONS (12)
  - Pain [Unknown]
  - Thought blocking [Not Recovered/Not Resolved]
  - Parkinson^s disease [Unknown]
  - Hypotension [Unknown]
  - Oropharyngeal pain [Recovered/Resolved]
  - Device kink [Recovered/Resolved]
  - Foot deformity [Unknown]
  - Dyskinesia [Recovered/Resolved]
  - Gait inability [Unknown]
  - Dystonia [Unknown]
  - Device occlusion [Unknown]
  - Gait disturbance [Unknown]
